FAERS Safety Report 6510715-7 (Version None)
Quarter: 2009Q4

REPORT INFORMATION
  Report Type: 
  Country: None (occurrence: None)
  Receive Date: 20091222
  Receipt Date: 20091022
  Transmission Date: 20100525
  Serious: No
  Sender: FDA-Public Use
  Company Number: US-ASTRAZENECA-2009SE21875

PATIENT
  Age: 80 Year
  Sex: Female
  Weight: 45.4 kg

DRUGS (4)
  1. CRESTOR [Suspect]
     Route: 048
     Dates: start: 20091007
  2. FLONASE [Concomitant]
     Indication: MULTIPLE ALLERGIES
  3. FOSAMAX [Concomitant]
     Indication: OSTEOPOROSIS
  4. SUPPLEMENTS [Concomitant]

REACTIONS (2)
  - DRUG ADMINISTRATION ERROR [None]
  - HEADACHE [None]
